FAERS Safety Report 13855599 (Version 1)
Quarter: 2017Q3

REPORT INFORMATION
  Report Type: Spontaneous
  Country: US (occurrence: US)
  Receive Date: 20170810
  Receipt Date: 20170810
  Transmission Date: 20171127
  Serious: No
  Sender: FDA-Public Use
  Company Number: US-VIFOR (INTERNATIONAL) INC.-VIT-2017-05043

PATIENT
  Age: 77 Year
  Sex: Female

DRUGS (20)
  1. TERAZOSIN [Concomitant]
     Active Substance: TERAZOSIN\TERAZOSIN HYDROCHLORIDE
  2. FERROUS SULFATE. [Concomitant]
     Active Substance: FERROUS SULFATE
  3. PANTOTHENIC ACID [Concomitant]
     Active Substance: PANTOTHENIC ACID
  4. AMLODIPINE [Concomitant]
     Active Substance: AMLODIPINE BESYLATE
  5. FOLIC ACID. [Concomitant]
     Active Substance: FOLIC ACID
  6. COD-LIVER OIL [Concomitant]
     Active Substance: FISH OIL
  7. PYRIDOXINE HYDROCHLORIDE. [Concomitant]
     Active Substance: PYRIDOXINE HYDROCHLORIDE
  8. FUROSEMIDE. [Concomitant]
     Active Substance: FUROSEMIDE
  9. VELTASSA [Suspect]
     Active Substance: PATIROMER
     Indication: HYPERKALAEMIA
     Route: 048
     Dates: end: 201704
  10. OYSTER SHELL CALCIUM [Concomitant]
     Active Substance: CALCIUM
  11. PIOGLITAZONE. [Concomitant]
     Active Substance: PIOGLITAZONE
  12. METOPROLOL. [Concomitant]
     Active Substance: METOPROLOL
  13. NICOTINAMIDE [Concomitant]
     Active Substance: NIACINAMIDE
  14. ACARBOSE. [Concomitant]
     Active Substance: ACARBOSE
  15. THIAMINE. [Concomitant]
     Active Substance: THIAMINE
  16. RIBOFLAVIN [Concomitant]
     Active Substance: RIBOFLAVIN
  17. LANTUS [Concomitant]
     Active Substance: INSULIN GLARGINE
  18. JANUVIA [Concomitant]
     Active Substance: SITAGLIPTIN PHOSPHATE
  19. GLIMEPIRIDE. [Concomitant]
     Active Substance: GLIMEPIRIDE
  20. VYTORIN [Concomitant]
     Active Substance: EZETIMIBE\SIMVASTATIN

REACTIONS (1)
  - Vomiting [Unknown]

NARRATIVE: CASE EVENT DATE: 201704
